FAERS Safety Report 11135411 (Version 2)
Quarter: 2015Q3

REPORT INFORMATION
  Report Type: Spontaneous
  Country: US (occurrence: None)
  Receive Date: 20150521
  Receipt Date: 20150706
  Transmission Date: 20151125
  Serious: Yes (Death, Hospitalization, Other)
  Sender: FDA-Public Use
  Company Number: ADR-2015-00983

PATIENT
  Age: 44 Year
  Sex: Female

DRUGS (5)
  1. BACLOFEN INTRATHECAL 670 MCG/ML [Suspect]
     Active Substance: BACLOFEN
     Indication: MUSCLE SPASTICITY
  2. BUPIVACAINE INTRATHECAL [Suspect]
     Active Substance: BUPIVACAINE
  3. CLONIDINE. [Suspect]
     Active Substance: CLONIDINE
  4. NORCO [Suspect]
     Active Substance: ACETAMINOPHEN\HYDROCODONE BITARTRATE
     Indication: PAIN
     Dosage: 7.5 MG UP TO THREE TIMES DAILY AS NEEDED
  5. FENTANYL INTRATHECAL 670MCG/ML [Suspect]
     Active Substance: FENTANYL

REACTIONS (1)
  - Pneumonia aspiration [None]
